FAERS Safety Report 17271052 (Version 1)
Quarter: 2020Q1

REPORT INFORMATION
  Report Type: Spontaneous
  Country: DK (occurrence: DK)
  Receive Date: 20200115
  Receipt Date: 20200115
  Transmission Date: 20200409
  Serious: Yes (Other)
  Sender: FDA-Public Use
  Company Number: DK-UCBSA-2020001977

PATIENT
  Age: 8 Year
  Sex: Female

DRUGS (10)
  1. LACOSAMIDE. [Suspect]
     Active Substance: LACOSAMIDE
     Indication: SEIZURE
     Dosage: UNKNOWN DOSE
  2. PHENOBARBITAL. [Concomitant]
     Active Substance: PHENOBARBITAL
     Indication: SEIZURE
     Dosage: UNKNOWN DOSE
  3. PERAMPANEL [Concomitant]
     Active Substance: PERAMPANEL
     Indication: SEIZURE
     Dosage: UNKNOWN DOSE
  4. PREDNISOLONE. [Concomitant]
     Active Substance: PREDNISOLONE
     Indication: SEIZURE
     Dosage: UNKNOWN DOSE
  5. LEVETIRACETAM. [Suspect]
     Active Substance: LEVETIRACETAM
     Indication: SEIZURE
     Dosage: UNKNOWN DOSE
  6. CARBAMAZEPINE. [Concomitant]
     Active Substance: CARBAMAZEPINE
     Indication: SEIZURE
     Dosage: UNKNOWN DOSE
  7. TOPIRAMATE. [Concomitant]
     Active Substance: TOPIRAMATE
     Indication: SEIZURE
     Dosage: UNKNOWN DOSE
  8. STIRIPENTOL [Concomitant]
     Active Substance: STIRIPENTOL
     Indication: SEIZURE
     Dosage: UNKNOWN DOSE
  9. ZONISAMIDE. [Concomitant]
     Active Substance: ZONISAMIDE
     Indication: SEIZURE
     Dosage: UNKNOWN DOSE
  10. PHENYTOIN. [Concomitant]
     Active Substance: PHENYTOIN
     Indication: SEIZURE
     Dosage: UNKNOWN DOSE

REACTIONS (2)
  - Drug ineffective [Unknown]
  - Seizure [Recovered/Resolved]
